FAERS Safety Report 9896527 (Version 2)
Quarter: 2014Q1

REPORT INFORMATION
  Report Type: Spontaneous
  Country: US (occurrence: US)
  Receive Date: 20140213
  Receipt Date: 20140213
  Transmission Date: 20141002
  Serious: No
  Sender: FDA-Public Use
  Company Number: US-BRISTOL-MYERS SQUIBB COMPANY-18854109

PATIENT
  Age: 53 Year
  Sex: Female

DRUGS (2)
  1. ABATACEPT SUBQ INJECTION 125MG/ML [Suspect]
     Indication: RHEUMATOID ARTHRITIS
     Dosage: LAST DOSE: JAN2013.
     Route: 058
  2. XELJANZ [Concomitant]
     Dosage: STOPPED AND SWITCHED BACK TO ORENCIA

REACTIONS (1)
  - Pain [Unknown]
